FAERS Safety Report 6662018-8 (Version None)
Quarter: 2010Q1

REPORT INFORMATION
  Report Type: 
  Country: None (occurrence: None)
  Receive Date: 20100331
  Receipt Date: 20091216
  Transmission Date: 20100710
  Serious: Yes (Other)
  Sender: FDA-Public Use
  Company Number: US-BRISTOL-MYERS SQUIBB COMPANY-14897920

PATIENT
  Age: 49 Year
  Sex: Male
  Weight: 63 kg

DRUGS (4)
  1. ERBITUX [Suspect]
     Indication: COLORECTAL CANCER
     Dates: start: 20091215
  2. DEXAMETHASONE [Concomitant]
     Indication: PREMEDICATION
  3. BENADRYL [Concomitant]
     Indication: PREMEDICATION
  4. ALOXI [Concomitant]
     Indication: PREMEDICATION

REACTIONS (6)
  - AGITATION [None]
  - CHEST DISCOMFORT [None]
  - COMA [None]
  - DYSPNOEA [None]
  - FLUSHING [None]
  - HYPOTENSION [None]
